APPROVED DRUG PRODUCT: STREPTOMYCIN SULFATE
Active Ingredient: STREPTOMYCIN SULFATE
Strength: EQ 1GM BASE/VIAL
Dosage Form/Route: INJECTABLE;INJECTION
Application: A064210 | Product #001
Applicant: XGEN PHARMACEUTICALS DJB INC
Approved: Jun 30, 1998 | RLD: No | RS: Yes | Type: RX